FAERS Safety Report 10227408 (Version 2)
Quarter: 2014Q3

REPORT INFORMATION
  Report Type: Report from Study
  Country: CA (occurrence: None)
  Receive Date: 20140606
  Receipt Date: 20140923
  Transmission Date: 20150326
  Serious: Yes (Hospitalization)
  Sender: FDA-Public Use
  Company Number: CA-015896

PATIENT
  Age: 76 Year
  Sex: Male

DRUGS (5)
  1. FIRMAGON [Suspect]
     Active Substance: DEGARELIX ACETATE
     Indication: PROSTATE CANCER
     Route: 058
     Dates: start: 20130205
  2. D VITAMIN NATURE MADE [Concomitant]
  3. METFORMIN [Concomitant]
     Active Substance: METFORMIN HYDROCHLORIDE
  4. CALCIUM [Concomitant]
     Active Substance: CALCIUM
  5. ASA [Concomitant]
     Active Substance: ASPIRIN

REACTIONS (4)
  - Pyrexia [None]
  - Pneumonia [None]
  - Hyperglycaemia [None]
  - Rash [None]

NARRATIVE: CASE EVENT DATE: 201405
